FAERS Safety Report 4737131-2 (Version None)
Quarter: 2005Q3

REPORT INFORMATION
  Report Type: 
  Country: None (occurrence: None)
  Receive Date: 20050804
  Receipt Date: 20050726
  Transmission Date: 20060218
  Serious: Yes (Disabling)
  Sender: FDA-Public Use
  Company Number: 2005-07-1824

PATIENT
  Age: 58 Year
  Sex: Male
  Weight: 68 kg

DRUGS (7)
  1. PEG-INTRON [Suspect]
     Indication: HEPATITIS C
     Dosage: 50 MCG QW SUBCUTANEOUS
     Route: 058
     Dates: start: 20031115, end: 20040511
  2. PEG-INTRON [Suspect]
     Indication: POST PROCEDURAL COMPLICATION
     Dosage: 50 MCG QW SUBCUTANEOUS
     Route: 058
     Dates: start: 20031115, end: 20040511
  3. REBETOL [Suspect]
     Indication: HEPATITIS C
     Dosage: 400 MG QD ORAL
     Route: 048
     Dates: start: 20031115, end: 20040511
  4. REBETOL [Suspect]
     Indication: POST PROCEDURAL COMPLICATION
     Dosage: 400 MG QD ORAL
     Route: 048
     Dates: start: 20031115, end: 20040511
  5. AZATHIOPRINE [Concomitant]
  6. AMLODIPINE [Concomitant]
  7. SANDIMMUNE [Concomitant]

REACTIONS (3)
  - DYSGEUSIA [None]
  - GASTROINTESTINAL DISORDER [None]
  - LIBIDO DECREASED [None]
